FAERS Safety Report 24658566 (Version 1)
Quarter: 2024Q4

REPORT INFORMATION
  Report Type: Spontaneous
  Country: US (occurrence: US)
  Receive Date: 20241125
  Receipt Date: 20241125
  Transmission Date: 20250114
  Serious: Yes (Other)
  Sender: MYLAN
  Company Number: US-MYLANLABS-2024M1103849

PATIENT
  Age: 50 Year
  Sex: Male

DRUGS (4)
  1. BROMOCRIPTINE [Suspect]
     Active Substance: BROMOCRIPTINE
     Indication: Prolactin-producing pituitary tumour
     Dosage: 2.5 MILLIGRAM, QD, FOR 3MONTHS
     Route: 065
  2. CABERGOLINE [Suspect]
     Active Substance: CABERGOLINE
     Indication: Prolactin-producing pituitary tumour
     Dosage: 0.5 MILLIGRAM, BIWEEKLY
     Route: 065
  3. CABERGOLINE [Suspect]
     Active Substance: CABERGOLINE
     Dosage: 0.25 MILLIGRAM, BIWEEKLY
     Route: 065
  4. LEVOTHYROXINE [Concomitant]
     Active Substance: LEVOTHYROXINE
     Indication: Prolactin-producing pituitary tumour
     Dosage: 75 MICROGRAM, QD
     Route: 065

REACTIONS (1)
  - Chiasma syndrome [Unknown]
